FAERS Safety Report 6755561-4 (Version None)
Quarter: 2010Q2

REPORT INFORMATION
  Report Type: 
  Country: None (occurrence: None)
  Receive Date: 20100604
  Receipt Date: 20100525
  Transmission Date: 20101027
  Serious: Yes (Hospitalization, Other)
  Sender: FDA-Public Use
  Company Number: JP-SHIRE-SPV1-2010-01019

PATIENT

DRUGS (11)
  1. LANTHANUM CARBONATE [Suspect]
     Indication: HYPERPHOSPHATAEMIA
     Dosage: UNK, UNK
     Route: 048
     Dates: start: 20090420, end: 20090423
  2. LANTHANUM CARBONATE [Suspect]
     Route: 048
     Dates: start: 20090424
  3. CALCIUM CARBONATE [Concomitant]
     Indication: HYPERPHOSPHATAEMIA
     Dosage: 1500 MG, UNKNOWN
     Route: 048
     Dates: end: 20091026
  4. ONEALFA [Concomitant]
     Route: 048
  5. ASPIRIN [Concomitant]
     Dosage: 100 MG, UNKNOWN
     Route: 048
  6. EVISTA [Concomitant]
     Dosage: 60 MG, UNK
     Route: 048
  7. NORVASC [Concomitant]
     Dosage: 5 MG, UNKNOWN
     Route: 048
  8. MUCOSTA [Concomitant]
     Dosage: 300 MG, UNKNOWN
     Route: 048
  9. PROTECADIN [Concomitant]
     Dosage: 10 MG, UNKNOWN
     Route: 048
  10. LENDORMIN [Concomitant]
     Dosage: .25 MG, UNKNOWN
     Route: 048
  11. NESP [Concomitant]
     Dosage: 50 UG, UNKNOWN
     Route: 042

REACTIONS (4)
  - DEVICE RELATED INFECTION [None]
  - NAUSEA [None]
  - SHUNT MALFUNCTION [None]
  - VOMITING [None]
